FAERS Safety Report 23649330 (Version 3)
Quarter: 2024Q2

REPORT INFORMATION
  Report Type: Spontaneous
  Country: US (occurrence: US)
  Receive Date: 20240319
  Receipt Date: 20240617
  Transmission Date: 20240716
  Serious: Yes (Other)
  Sender: FDA-Public Use
  Company Number: US-PFIZER INC-PV202400036405

PATIENT
  Age: 69 Year
  Sex: Female
  Weight: 111.11 kg

DRUGS (3)
  1. VANCOMYCIN HYDROCHLORIDE [Suspect]
     Active Substance: VANCOMYCIN HYDROCHLORIDE
     Indication: Staphylococcal infection
     Dosage: UNK
  2. BOSULIF [Concomitant]
     Active Substance: BOSUTINIB MONOHYDRATE
     Indication: Chronic myeloid leukaemia
     Dosage: 500 MG, DAILY
     Route: 048
  3. BOSULIF [Concomitant]
     Active Substance: BOSUTINIB MONOHYDRATE
     Dosage: 200 MG
     Route: 048

REACTIONS (10)
  - Acute kidney injury [Recovered/Resolved]
  - Dyspnoea [Recovered/Resolved]
  - Fluid retention [Unknown]
  - Renal disorder [Unknown]
  - Blood urea increased [Unknown]
  - Creatinine renal clearance increased [Unknown]
  - Swelling [Unknown]
  - Respiratory symptom [Recovered/Resolved]
  - Drug hypersensitivity [Unknown]
  - Abdominal discomfort [Unknown]
